FAERS Safety Report 6450835-9 (Version None)
Quarter: 2009Q4

REPORT INFORMATION
  Report Type: 
  Country: None (occurrence: None)
  Receive Date: 20091123
  Receipt Date: 20090209
  Transmission Date: 20100525
  Serious: Yes (Other)
  Sender: FDA-Public Use
  Company Number: US-AMGEN-QUU333009

PATIENT
  Sex: Male

DRUGS (3)
  1. ENBREL [Suspect]
     Indication: RHEUMATOID ARTHRITIS
     Route: 058
     Dates: start: 20040101
  2. PLAQUENIL [Concomitant]
  3. TESTOSTERONE [Concomitant]

REACTIONS (6)
  - ANXIETY [None]
  - BLOOD TESTOSTERONE DECREASED [None]
  - CHILLS [None]
  - DEPRESSION [None]
  - DRUG INEFFECTIVE [None]
  - TREMOR [None]
